FAERS Safety Report 9384463 (Version 4)
Quarter: 2013Q3

REPORT INFORMATION
  Report Type: Spontaneous
  Country: US (occurrence: US)
  Receive Date: 20130705
  Receipt Date: 20130808
  Transmission Date: 20140515
  Serious: No
  Sender: FDA-Public Use
  Company Number: US-009507513-1306USA014530

PATIENT
  Sex: Male

DRUGS (6)
  1. VICTRELIS [Suspect]
     Indication: HEPATITIS C
     Dosage: 800 MG, TID 4 CAPSULES
     Route: 048
     Dates: start: 20130316, end: 20130612
  2. PEGASYS [Suspect]
     Dosage: UNK
     Dates: end: 20130625
  3. RIBAPAK [Suspect]
     Dosage: UNK
     Dates: end: 20130625
  4. RAMIPRIL [Concomitant]
     Indication: HYPERTENSION
     Dosage: 10 MG, QD
     Route: 048
  5. LOVASTATIN [Concomitant]
  6. ZOFRAN [Concomitant]
     Dosage: 4 MG, PRN
     Route: 048

REACTIONS (1)
  - Therapy responder [Recovered/Resolved]
